FAERS Safety Report 18348810 (Version 4)
Quarter: 2020Q4

REPORT INFORMATION
  Report Type: Spontaneous
  Country: JP (occurrence: JP)
  Receive Date: 20201006
  Receipt Date: 20201228
  Transmission Date: 20210114
  Serious: Yes (Hospitalization)
  Sender: FDA-Public Use
  Company Number: JP-AMGEN-JPNSP2020160976

PATIENT
  Age: 50 Year
  Sex: Female

DRUGS (28)
  1. PREDONINE [Suspect]
     Active Substance: PREDNISOLONE
     Indication: VASCULITIS
     Dosage: 30 MILLIGRAM, QD
     Route: 048
     Dates: start: 20200924, end: 20201008
  2. DECADRON (DEXAMETHASONE SODIUM PHOSPHATE) [Concomitant]
     Active Substance: DEXAMETHASONE SODIUM PHOSPHATE
     Dosage: 9.9 MILLIGRAM, Q3WK (1X/3 WEEKS)
     Route: 042
     Dates: start: 20200717, end: 20200904
  3. MIYA-BM [Concomitant]
     Active Substance: CLOSTRIDIUM BUTYRICUM SPORES STRAIN M-55
     Dosage: 1 DOSAGE FORM, TID
     Route: 048
     Dates: start: 20200918, end: 20200924
  4. MUCOSTA [Concomitant]
     Active Substance: REBAMIPIDE
     Dosage: 100 MILLIGRAM, QD
     Route: 048
     Dates: start: 20200918, end: 20200923
  5. ALLEGRA [Concomitant]
     Active Substance: FEXOFENADINE HYDROCHLORIDE
     Dosage: 60 MILLIGRAM, BID
     Route: 048
     Dates: start: 20200829, end: 20200831
  6. DAIPHEN [Concomitant]
     Active Substance: SULFAMETHOXAZOLE\TRIMETHOPRIM
     Dosage: 1 DOSAGE FORM, 3 TIMES/WK
     Route: 048
     Dates: start: 20200928, end: 20201119
  7. G-LASTA [Suspect]
     Active Substance: PEGFILGRASTIM
     Indication: COLONY STIMULATING FACTOR THERAPY
     Dosage: 3.6 MILLIGRAM, Q3WK, (1X/3 WEEKS)
     Route: 058
     Dates: start: 20200719, end: 20200906
  8. ENDOXAN [CYCLOPHOSPHAMIDE] [Concomitant]
     Active Substance: CYCLOPHOSPHAMIDE
     Dosage: 957.8 MILLIGRAM, Q3WK
     Route: 041
     Dates: start: 20200717, end: 20200904
  9. XYZAL [Concomitant]
     Active Substance: LEVOCETIRIZINE DIHYDROCHLORIDE
     Dosage: 5 MILLIGRAM, BID
     Route: 048
     Dates: start: 20200831, end: 20200904
  10. DECADRON [Concomitant]
     Active Substance: DEXAMETHASONE
     Dosage: 4 MILLIGRAM, BID
     Route: 048
     Dates: start: 20200718, end: 20200719
  11. DECADRON [Concomitant]
     Active Substance: DEXAMETHASONE
     Dosage: 4 MILLIGRAM, BID
     Route: 048
     Dates: start: 20200905, end: 20200906
  12. LANSOPRAZOLE. [Concomitant]
     Active Substance: LANSOPRAZOLE
     Dosage: 15 MILLIGRAM, QD
     Route: 048
     Dates: start: 20200924
  13. DOCETAXEL. [Concomitant]
     Active Substance: DOCETAXEL
     Dosage: 119 MILLIGRAM, Q3WK
     Route: 041
     Dates: start: 20200717, end: 20200904
  14. TRAZODONE HYDROCHLORIDE. [Concomitant]
     Active Substance: TRAZODONE HYDROCHLORIDE
     Dosage: 25 MILLIGRAM, QD
     Route: 048
     Dates: start: 20201002, end: 20201016
  15. NOLVADEX [Concomitant]
     Active Substance: TAMOXIFEN CITRATE
     Dosage: 20 MILLIGRAM, QD
     Route: 048
     Dates: start: 20201010
  16. PREDONINE [Suspect]
     Active Substance: PREDNISOLONE
     Dosage: 20 MILLIGRAM, QD
     Route: 048
     Dates: start: 20201030, end: 20201119
  17. GRANISETRON [GRANISETRON HYDROCHLORIDE] [Concomitant]
     Active Substance: GRANISETRON HYDROCHLORIDE
     Dosage: 3 MILLIGRAM, Q3WK (1X/3 WEEKS)
     Route: 042
     Dates: start: 20200717, end: 20200904
  18. ALLELOCK [Concomitant]
     Active Substance: OLOPATADINE HYDROCHLORIDE
     Dosage: 5 MILLIGRAM, BID
     Route: 048
     Dates: start: 20200918, end: 20201015
  19. PREDONINE [Suspect]
     Active Substance: PREDNISOLONE
     Dosage: 25 MILLIGRAM, QD
     Route: 048
     Dates: start: 20201009, end: 20201029
  20. OLMESARTAN OD [Concomitant]
     Active Substance: OLMESARTAN MEDOXOMIL
     Dosage: 10 MILLIGRAM, QD
     Route: 048
  21. DECADRON [Concomitant]
     Active Substance: DEXAMETHASONE
     Dosage: 4 MILLIGRAM, BID
     Route: 048
     Dates: start: 20200815, end: 20200816
  22. METHYCOBAL [Concomitant]
     Active Substance: METHYLCOBALAMIN
     Dosage: 500 MICROGRAM, TID
     Route: 048
     Dates: start: 20200717
  23. GLYCYRON [DL-METHIONINE;GLYCINE;GLYCYRRHIZIC ACID, AMMONIUM SALT] [Concomitant]
     Active Substance: AMMONIUM GLYCYRRHIZATE\GLYCINE\RACEMETHIONINE
     Dosage: 1 DOSAGE FORM, TID
     Route: 048
     Dates: start: 20200904, end: 20201016
  24. ALENDRONATE [Concomitant]
     Active Substance: ALENDRONATE SODIUM
     Dosage: 35 MILLIGRAM, QWK (1X/WEEK)
     Route: 048
     Dates: start: 20200925
  25. PREDONINE [Suspect]
     Active Substance: PREDNISOLONE
     Dosage: 15 MILLIGRAM, QD
     Route: 048
     Dates: start: 20201120
  26. FAMOTIDINE. [Concomitant]
     Active Substance: FAMOTIDINE
     Dosage: 20 MILLIGRAM, Q3WK (1X/3 WEEKS)
     Route: 042
     Dates: start: 20200717, end: 20200904
  27. NEORESTAR [Concomitant]
     Active Substance: CHLORPHENIRAMINE MALEATE
     Dosage: 10 MILLIGRAM, Q3WK (1X/3 WEEKS)
     Route: 042
     Dates: start: 20200717, end: 20200904
  28. ALLELOCK [Concomitant]
     Active Substance: OLOPATADINE HYDROCHLORIDE
     Dosage: 10 MILLIGRAM, BID
     Route: 048
     Dates: start: 20200904, end: 20200918

REACTIONS (2)
  - Insomnia [Recovering/Resolving]
  - Arteritis [Recovering/Resolving]

NARRATIVE: CASE EVENT DATE: 202009
